FAERS Safety Report 13587395 (Version 23)
Quarter: 2020Q2

REPORT INFORMATION
  Report Type: Report from Study
  Country: US (occurrence: US)
  Receive Date: 20170526
  Receipt Date: 20200422
  Transmission Date: 20200713
  Serious: Yes (Death, Life-Threatening, Hospitalization, Other)
  Sender: FDA-Public Use
  Company Number: US-ACTELION-A-US2015-129065

PATIENT
  Age: 58 Year
  Sex: Male
  Weight: 78.46 kg

DRUGS (42)
  1. CLARITIN [Concomitant]
     Active Substance: LORATADINE
     Dosage: UNK
     Dates: start: 20170515
  2. LASIX [Concomitant]
     Active Substance: FUROSEMIDE
     Dosage: UNK
     Dates: start: 20170515
  3. FENTANYL. [Concomitant]
     Active Substance: FENTANYL
     Dosage: UNK
     Dates: start: 20170515
  4. SILDENAFIL. [Concomitant]
     Active Substance: SILDENAFIL
     Dosage: 20 MG, TID
     Route: 048
  5. TRAMADOL. [Concomitant]
     Active Substance: TRAMADOL
     Indication: PAIN
     Dosage: 50 MG, BID PRN
     Route: 048
  6. PROMETHAZINE DM [Concomitant]
     Active Substance: DEXTROMETHORPHAN HYDROBROMIDE\PROMETHAZINE HYDROCHLORIDE
     Indication: COUGH
     Dosage: 5 ML, Q4HRS PRN
     Route: 048
  7. FLONASE [Concomitant]
     Active Substance: FLUTICASONE PROPIONATE
     Dosage: UNK
     Dates: start: 20170515
  8. PROPOFOL. [Concomitant]
     Active Substance: PROPOFOL
     Dosage: UNK
     Dates: start: 20170515
  9. METOPROLOL TARTRATE. [Concomitant]
     Active Substance: METOPROLOL TARTRATE
     Dosage: 12.5 MG, BID
     Route: 048
  10. ASPIRIN. [Concomitant]
     Active Substance: ASPIRIN
     Dosage: 81 MG, QD
     Route: 048
  11. REVATIO [Concomitant]
     Active Substance: SILDENAFIL CITRATE
     Dosage: 20 MG, TID
     Route: 048
  12. HEPARIN [Concomitant]
     Active Substance: HEPARIN SODIUM
     Dosage: UNK
     Dates: start: 20170515
  13. ALBUTEROL. [Concomitant]
     Active Substance: ALBUTEROL
     Indication: WHEEZING
     Dosage: 1 PUFF, Q6HRS PRN
  14. FOLIC ACID. [Concomitant]
     Active Substance: FOLIC ACID
  15. RANITIDINE. [Concomitant]
     Active Substance: RANITIDINE
     Dosage: 150 MG, BID
     Route: 048
  16. XANAX [Concomitant]
     Active Substance: ALPRAZOLAM
  17. ALPRAZOLAM. [Concomitant]
     Active Substance: ALPRAZOLAM
     Indication: ANXIETY
     Dosage: 1 MG, BID PRN
     Route: 048
  18. OXYGEN. [Concomitant]
     Active Substance: OXYGEN
     Dosage: UNK
  19. BACLOFEN. [Concomitant]
     Active Substance: BACLOFEN
     Dosage: 10 MG, QPM
     Route: 048
     Dates: start: 20170515
  20. BENZONATATE. [Concomitant]
     Active Substance: BENZONATATE
  21. DEXTROMETHORPHAN HBR + GUAIFENESIN [Concomitant]
     Active Substance: DEXTROMETHORPHAN HYDROBROMIDE\GUAIFENESIN
  22. FINASTERIDE. [Concomitant]
     Active Substance: FINASTERIDE
  23. THIAMINE. [Concomitant]
     Active Substance: THIAMINE
  24. LORATADINE. [Concomitant]
     Active Substance: LORATADINE
     Dosage: 10 MG, QD
     Route: 048
  25. FAMOTIDINE. [Concomitant]
     Active Substance: FAMOTIDINE
     Dosage: 40 MG, QD
     Route: 048
  26. FUROSEMIDE. [Concomitant]
     Active Substance: FUROSEMIDE
     Dosage: 20 MG, QD
     Route: 048
  27. FUROSEMIDE. [Concomitant]
     Active Substance: FUROSEMIDE
     Dosage: 60 MG, BID
     Route: 048
  28. OPSUMIT [Suspect]
     Active Substance: MACITENTAN
     Indication: PULMONARY ARTERIAL HYPERTENSION
     Dosage: 10 MG, QD
     Route: 048
     Dates: start: 20151028, end: 20200408
  29. OPSUMIT [Suspect]
     Active Substance: MACITENTAN
     Dosage: 10 MG
     Route: 048
  30. LASIX [Concomitant]
     Active Substance: FUROSEMIDE
     Dosage: 60 MG, QD
     Route: 042
  31. OMEPRAZOLE. [Concomitant]
     Active Substance: OMEPRAZOLE
     Dosage: 40 MG, BID
     Route: 048
     Dates: start: 20170515
  32. MELOXICAM. [Concomitant]
     Active Substance: MELOXICAM
  33. FLUTICASONE. [Concomitant]
     Active Substance: FLUTICASONE
     Indication: HYPERSENSITIVITY
     Dosage: 1 SPRAY EACH NOSTRIL, BID PRN
  34. ASPIRIN. [Concomitant]
     Active Substance: ASPIRIN
     Dosage: 325 MG, QD
     Route: 048
  35. ENOXAPARIN [Concomitant]
     Active Substance: ENOXAPARIN
  36. TAMSULOSIN [Concomitant]
     Active Substance: TAMSULOSIN
     Dosage: .4 MG, QD
     Route: 048
     Dates: start: 20170515
  37. ACETAMINOPHEN. [Concomitant]
     Active Substance: ACETAMINOPHEN
     Dosage: UNK
     Dates: start: 20170515
  38. CEFTRIAXONE. [Concomitant]
     Active Substance: CEFTRIAXONE
     Dosage: UNK
     Dates: start: 20170515
  39. IPRATROPIUM [Concomitant]
     Active Substance: IPRATROPIUM
  40. PANTOPRAZOLE [Concomitant]
     Active Substance: PANTOPRAZOLE
  41. DOCUSATE [Concomitant]
     Active Substance: DOCUSATE
  42. MIRALAX [Concomitant]
     Active Substance: POLYETHYLENE GLYCOL 3350

REACTIONS (38)
  - Pulmonary arterial hypertension [Fatal]
  - Erythema [Unknown]
  - Dry mouth [Unknown]
  - Productive cough [Unknown]
  - Cardiac failure [Fatal]
  - Blood bilirubin increased [Unknown]
  - Left ventricular failure [Recovered/Resolved with Sequelae]
  - Scrotal oedema [Recovered/Resolved]
  - Oedema peripheral [Recovered/Resolved]
  - Atrial fibrillation [Recovering/Resolving]
  - Dizziness [Unknown]
  - Syncope [Recovering/Resolving]
  - Cellulitis [Unknown]
  - Condition aggravated [Recovering/Resolving]
  - Swelling [Recovering/Resolving]
  - Gastrooesophageal reflux disease [Unknown]
  - Loss of consciousness [Recovered/Resolved]
  - Peripheral swelling [Unknown]
  - Lacrimation increased [Unknown]
  - Mental status changes [Recovered/Resolved]
  - Respiratory failure [Recovered/Resolved with Sequelae]
  - Cardiac failure acute [Unknown]
  - Benign prostatic hyperplasia [Recovering/Resolving]
  - Localised oedema [Recovered/Resolved]
  - Restless legs syndrome [Unknown]
  - Epistaxis [Unknown]
  - Blood alkaline phosphatase increased [Unknown]
  - Aspartate aminotransferase increased [Recovered/Resolved]
  - Cough [Recovering/Resolving]
  - Hospitalisation [Unknown]
  - Dyspnoea [Recovered/Resolved with Sequelae]
  - Spinal fracture [Recovered/Resolved]
  - Clavicle fracture [Recovered/Resolved]
  - Fluid overload [Recovering/Resolving]
  - Fall [Recovered/Resolved]
  - Facial bones fracture [Recovered/Resolved]
  - Urinary retention [Recovering/Resolving]
  - Thinking abnormal [Unknown]

NARRATIVE: CASE EVENT DATE: 20170515
